FAERS Safety Report 12213475 (Version 1)
Quarter: 2016Q1

REPORT INFORMATION
  Report Type: Spontaneous
  Country: US (occurrence: None)
  Receive Date: 20160325
  Receipt Date: 20160325
  Transmission Date: 20160526
  Serious: Yes (Life-Threatening, Hospitalization, Disabling)
  Sender: FDA-Public Use
  Company Number: None

PATIENT
  Age: 45 Year
  Sex: Female
  Weight: 68.04 kg

DRUGS (7)
  1. PROTINIX [Concomitant]
  2. ZYRTEC [Concomitant]
     Active Substance: CETIRIZINE HYDROCHLORIDE
  3. CYMBALTA [Suspect]
     Active Substance: DULOXETINE HYDROCHLORIDE
     Indication: HEAD INJURY
     Dates: start: 20091024
  4. CYMBALTA [Concomitant]
     Active Substance: DULOXETINE HYDROCHLORIDE
  5. CYMBALTA [Suspect]
     Active Substance: DULOXETINE HYDROCHLORIDE
     Indication: DEPRESSION
     Dates: start: 20091024
  6. SINGULAIR [Concomitant]
     Active Substance: MONTELUKAST SODIUM
  7. FAMOTIDINE. [Concomitant]
     Active Substance: FAMOTIDINE

REACTIONS (12)
  - Bladder disorder [None]
  - Ageusia [None]
  - Hyperhidrosis [None]
  - Tooth disorder [None]
  - Erosive oesophagitis [None]
  - Cystitis interstitial [None]
  - Vomiting [None]
  - Choking [None]
  - Sexual dysfunction [None]
  - Urticaria [None]
  - Urinary retention [None]
  - Anosmia [None]

NARRATIVE: CASE EVENT DATE: 20120705
